FAERS Safety Report 4268298-0 (Version None)
Quarter: 2004Q1

REPORT INFORMATION
  Report Type: 
  Country: None (occurrence: None)
  Receive Date: 20040108
  Receipt Date: 20031231
  Transmission Date: 20041129
  Serious: Yes (Hospitalization)
  Sender: FDA-Public Use
  Company Number: 2003-11-0845

PATIENT
  Age: 45 Year
  Sex: Male

DRUGS (9)
  1. PEG-INTRON [Suspect]
     Indication: HEPATITIS C
     Dosage: 150 MCG QWK SUBCUTANEOUS
     Route: 058
     Dates: start: 20031022, end: 20031102
  2. RIBAVIRIN [Suspect]
     Indication: HEPATITIS C
     Dosage: 1200 MG QD ORAL
     Route: 048
     Dates: start: 20031022, end: 20031102
  3. ZOLOFT [Concomitant]
  4. PENTASA [Concomitant]
  5. PANTOLOC (PANTOPRAZOLE SODIUM) [Concomitant]
  6. VITAMIN C [Concomitant]
  7. MULTI-VITAMINS [Concomitant]
  8. CALCIUM [Concomitant]
  9. COCAINE [Suspect]

REACTIONS (19)
  - ABDOMINAL PAIN [None]
  - ACUTE RESPIRATORY DISTRESS SYNDROME [None]
  - ANAEMIA [None]
  - CATHETER SEPSIS [None]
  - DIALYSIS [None]
  - DRUG SCREEN POSITIVE [None]
  - FUNGAL SKIN INFECTION [None]
  - HEPATIC ENCEPHALOPATHY [None]
  - HEPATIC FAILURE [None]
  - HEPATITIS C [None]
  - ISCHAEMIC HEPATITIS [None]
  - MYOCARDIAL ISCHAEMIA [None]
  - OESOPHAGEAL VARICES HAEMORRHAGE [None]
  - PNEUMONIA ASPIRATION [None]
  - RENAL FAILURE ACUTE [None]
  - STAPHYLOCOCCAL INFECTION [None]
  - TACHYCARDIA [None]
  - THROMBOCYTOPENIA [None]
  - TREATMENT NONCOMPLIANCE [None]
